FAERS Safety Report 8830364 (Version 1)
Quarter: 2012Q4

REPORT INFORMATION
  Report Type: 
  Country: US (occurrence: US)
  Receive Date: 20121009
  Receipt Date: 20121009
  Transmission Date: 20130627
  Serious: No
  Sender: FDA-Public Use
  Company Number: US-PFIZER INC-2012245503

PATIENT
  Age: 73 Year
  Sex: Male

DRUGS (3)
  1. SUTENT [Suspect]
     Indication: NEUROENDOCRINE CARCINOMA
     Dosage: 37.5 mg (three 12.5mg capsules), 1x/day
     Route: 048
     Dates: start: 20120725, end: 2012
  2. REGLAN [Concomitant]
     Dosage: UNK
  3. DILAUDID [Concomitant]
     Dosage: UNK

REACTIONS (4)
  - Infection [Unknown]
  - Fatigue [Unknown]
  - Pain in jaw [Unknown]
  - Diarrhoea [Unknown]
